FAERS Safety Report 16351298 (Version 2)
Quarter: 2019Q2

REPORT INFORMATION
  Report Type: Spontaneous
  Country: NL (occurrence: NL)
  Receive Date: 20190524
  Receipt Date: 20190625
  Transmission Date: 20190711
  Serious: Yes (Hospitalization, Other)
  Sender: FDA-Public Use
  Company Number: NL-AUROBINDO-AUR-APL-2019-029073

PATIENT

DRUGS (4)
  1. OXALIPLATIN. [Suspect]
     Active Substance: OXALIPLATIN
     Indication: COLORECTAL CANCER
     Dosage: 85 MILLIGRAM/SQ. METER (DATE OF MOST RECENT DOSE PRIOR TO SAE: 17/APR/2019)
     Route: 042
     Dates: start: 20190403
  2. FLUOROURACIL. [Suspect]
     Active Substance: FLUOROURACIL
     Indication: COLORECTAL CANCER
     Dosage: 400 MILLIGRAM/SQ. METER (DATE OF MOST RECENT DOSE PRIOR TO SAE: 18/APR/2019)
     Route: 042
     Dates: start: 20190403
  3. BEVACIZUMAB. [Suspect]
     Active Substance: BEVACIZUMAB
     Indication: COLORECTAL CANCER
     Dosage: 5 MILLIGRAM/KILOGRAM (DATE OF LAST DOSE PRIOR TO SAE: 17/APR/2019)
     Route: 042
     Dates: start: 20190303
  4. LEUCOVORINE [Suspect]
     Active Substance: LEUCOVORIN
     Indication: COLORECTAL CANCER
     Dosage: 400 MILLIGRAM/SQ. METER (DATE OF LAST DOSE PRIOR TO SAE: 17/APR/2019)
     Route: 042
     Dates: start: 20190403

REACTIONS (1)
  - Pulmonary embolism [Recovering/Resolving]

NARRATIVE: CASE EVENT DATE: 20190424
